FAERS Safety Report 23254377 (Version 1)
Quarter: 2023Q4

REPORT INFORMATION
  Report Type: Spontaneous
  Country: US (occurrence: US)
  Receive Date: 20231202
  Receipt Date: 20231202
  Transmission Date: 20240109
  Serious: No
  Sender: FDA-Public Use
  Company Number: US-IBSA PHARMA INC.-2023IBS000494

PATIENT

DRUGS (1)
  1. TIROSINT [Suspect]
     Active Substance: LEVOTHYROXINE SODIUM
     Indication: Product used for unknown indication
     Dosage: 100 MICROGRAM

REACTIONS (7)
  - Weight increased [Unknown]
  - Peripheral coldness [Unknown]
  - Stress [Unknown]
  - Blood glucose increased [Unknown]
  - Fatigue [Unknown]
  - Underdose [Unknown]
  - Product supply issue [Unknown]
